FAERS Safety Report 23501398 (Version 1)
Quarter: 2024Q1

REPORT INFORMATION
  Report Type: Spontaneous
  Country: IN (occurrence: IN)
  Receive Date: 20240208
  Receipt Date: 20240208
  Transmission Date: 20240410
  Serious: Yes (Other)
  Sender: FDA-Public Use
  Company Number: IN-FreseniusKabi-FK202402002

PATIENT
  Age: 59 Year
  Sex: Male
  Weight: 58 kg

DRUGS (2)
  1. PACLITAXEL [Suspect]
     Active Substance: PACLITAXEL
     Indication: Chemotherapy
     Dosage: FOA - INJECTION
     Route: 042
     Dates: start: 20240130, end: 20240130
  2. PACLITAXEL [Suspect]
     Active Substance: PACLITAXEL
     Dosage: FOA - INJECTION
     Route: 042
     Dates: start: 20240130, end: 20240130

REACTIONS (3)
  - Vertigo [Recovered/Resolved]
  - Discomfort [Recovered/Resolved]
  - Flushing [Recovered/Resolved]

NARRATIVE: CASE EVENT DATE: 20240130
